FAERS Safety Report 7464231-9 (Version None)
Quarter: 2011Q2

REPORT INFORMATION
  Report Type: 
  Country: None (occurrence: None)
  Receive Date: 20110506
  Receipt Date: 20110427
  Transmission Date: 20111010
  Serious: Yes (Hospitalization)
  Sender: FDA-Public Use
  Company Number: US-ASTRAZENECA-2011SE21351

PATIENT
  Age: 79 Year
  Sex: Male

DRUGS (11)
  1. GLIPIZIE [Concomitant]
     Indication: DIABETES MELLITUS
  2. KLOR-GEN [Concomitant]
     Indication: MUSCLE SPASMS
  3. VITAMINS [Concomitant]
     Dosage: ONE A DAY
  4. IBUPROFEN [Concomitant]
     Indication: ARTHRITIS INFECTIVE
  5. NEXIUM [Suspect]
     Indication: GASTROOESOPHAGEAL REFLUX DISEASE
     Route: 048
  6. HYDROCHLOROTHIAZIDE [Concomitant]
     Indication: BLOOD PRESSURE
  7. MORPHINE [Concomitant]
     Indication: ARTHRALGIA
  8. AMLODIPINE BESYLATE [Concomitant]
     Indication: BLOOD PRESSURE
  9. IBUPROFEN [Concomitant]
     Indication: ARTHRALGIA
  10. TAMSULOSIN HCL [Concomitant]
     Indication: PROSTATOMEGALY
     Dosage: TEO TIMES A DAY
  11. SIMVASTATIN [Concomitant]
     Indication: HYPERCHOLESTEROLAEMIA

REACTIONS (1)
  - KNEE OPERATION [None]
